FAERS Safety Report 19617856 (Version 2)
Quarter: 2022Q1

REPORT INFORMATION
  Report Type: Spontaneous
  Country: US (occurrence: US)
  Receive Date: 20210727
  Receipt Date: 20220303
  Transmission Date: 20220423
  Serious: No
  Sender: FDA-Public Use
  Company Number: US-PFIZER INC-2021619508

PATIENT
  Age: 64 Year
  Sex: Female

DRUGS (2)
  1. XELJANZ XR [Suspect]
     Active Substance: TOFACITINIB CITRATE
     Indication: Rheumatoid arthritis
     Dosage: 11 MG, 1X/DAY
     Route: 048
     Dates: start: 20210521, end: 2021
  2. CELEBREX [Concomitant]
     Active Substance: CELECOXIB
     Dosage: UNK

REACTIONS (5)
  - Pain [Unknown]
  - Feeling abnormal [Unknown]
  - Feeling of relaxation [Unknown]
  - Visual impairment [Unknown]
  - Liver function test increased [Recovered/Resolved]

NARRATIVE: CASE EVENT DATE: 20210101
